FAERS Safety Report 15735164 (Version 1)
Quarter: 2018Q4

REPORT INFORMATION
  Report Type: Report from Study
  Country: GB (occurrence: GB)
  Receive Date: 20181218
  Receipt Date: 20181218
  Transmission Date: 20190205
  Serious: Yes (Hospitalization)
  Sender: FDA-Public Use
  Company Number: GB-ROCHE-2228918

PATIENT
  Age: 66 Year
  Sex: Male
  Weight: 75 kg

DRUGS (19)
  1. DERMOL [Concomitant]
     Active Substance: BENZALKONIUM CHLORIDE\CHLORHEXIDINE HYDROCHLORIDE\ISOPROPYL MYRISTATE\PARAFFIN
     Indication: RASH
     Dosage: RASH ON FACE + CHEST + BACK
     Route: 065
     Dates: start: 20180525
  2. CANDESARTAN. [Concomitant]
     Active Substance: CANDESARTAN
     Indication: HYPERTENSION
     Dosage: BASELINE HYPERTENSION
     Route: 065
     Dates: start: 20181107, end: 20181114
  3. MOMETASONE FUROATE. [Concomitant]
     Active Substance: MOMETASONE FUROATE
     Indication: RASH
     Route: 065
     Dates: start: 20181031
  4. LANSOPRAZOLE. [Concomitant]
     Active Substance: LANSOPRAZOLE
     Indication: DYSPEPSIA
     Dosage: PROPHYLAXIS FOR DYSPEPSIA
     Route: 065
     Dates: start: 201709
  5. ATEZOLIZUMAB. [Suspect]
     Active Substance: ATEZOLIZUMAB
     Indication: SQUAMOUS CELL CARCINOMA OF HEAD AND NECK
     Dosage: DATE OF MOST RECENT DOSE OF ATEZOLIZUMAB PRIOR TO SAE ONSET 27/NOV/2018 (840 MG)
     Route: 042
     Dates: start: 20180430
  6. NYSTATIN. [Concomitant]
     Active Substance: NYSTATIN
     Dosage: PROPHYLAXIS OF YEAST GROWTH ON VOICE PROSTHESIS
     Route: 065
     Dates: start: 20170524, end: 20181112
  7. CLINDAMYCIN. [Concomitant]
     Active Substance: CLINDAMYCIN
     Indication: DERMATITIS ACNEIFORM
     Route: 065
     Dates: start: 20180531
  8. EPADERM [Concomitant]
     Active Substance: MINERAL OIL\PETROLATUM\WAX, EMULSIFYING
     Indication: RASH
     Route: 065
     Dates: start: 20181031
  9. DOXYCYCLINE. [Concomitant]
     Active Substance: DOXYCYCLINE
     Indication: LARGE INTESTINE PERFORATION
     Route: 065
     Dates: start: 20181127
  10. LYMECYCLINE [Concomitant]
     Active Substance: LYMECYCLINE
     Indication: RASH
     Dosage: RASH ON FACE + CHEST + BACK + RASH ON SCALP
     Route: 065
     Dates: start: 20180525
  11. BENZYDAMINE HYDROCHLORIDE [Concomitant]
     Active Substance: BENZYDAMINE HYDROCHLORIDE
     Indication: ORAL PAIN
     Route: 065
     Dates: start: 20180525
  12. LORATADINE. [Concomitant]
     Active Substance: LORATADINE
     Indication: RASH
     Route: 065
     Dates: start: 20181018
  13. LEVOTHYROXINE. [Concomitant]
     Active Substance: LEVOTHYROXINE
     Indication: HYPOTHYROIDISM
     Route: 065
     Dates: start: 201709
  14. LEVOTHYROXINE. [Concomitant]
     Active Substance: LEVOTHYROXINE
     Indication: THYROID HORMONE REPLACEMENT THERAPY
  15. ALFACALCIDOL [Concomitant]
     Active Substance: ALFACALCIDOL
     Indication: HYPOTHYROIDISM
     Route: 065
     Dates: start: 201709
  16. LOPERAMIDE [Concomitant]
     Active Substance: LOPERAMIDE
     Indication: DIARRHOEA
     Route: 065
     Dates: start: 20180514
  17. COBIMETINIB. [Suspect]
     Active Substance: COBIMETINIB
     Indication: SQUAMOUS CELL CARCINOMA OF HEAD AND NECK
     Dosage: DATE OF MOST RECENT DOSE OF COBIMETINIB PRIOR TO SAE ONSET 03/DEC/2018? ONCE A DAY ON DAYS 1-21 OF E
     Route: 048
     Dates: start: 20180430
  18. BETAMETHASONE VALERATE. [Concomitant]
     Active Substance: BETAMETHASONE VALERATE
     Indication: RASH
     Dosage: RASH ON SACLP
     Route: 065
     Dates: start: 20180525
  19. CANDESARTAN. [Concomitant]
     Active Substance: CANDESARTAN
     Dosage: BASELINE HYPERTENSION
     Route: 065
     Dates: start: 20181115

REACTIONS (1)
  - Large intestine perforation [Not Recovered/Not Resolved]

NARRATIVE: CASE EVENT DATE: 20181210
